FAERS Safety Report 9127392 (Version 2)
Quarter: 2013Q2

REPORT INFORMATION
  Report Type: Spontaneous
  Country: BE (occurrence: BE)
  Receive Date: 20130228
  Receipt Date: 20130619
  Transmission Date: 20140414
  Serious: Yes (Other)
  Sender: FDA-Public Use
  Company Number: BE-ASTRAZENECA-2013SE12322

PATIENT
  Age: 44 Year
  Sex: Male
  Weight: 101.5 kg

DRUGS (2)
  1. CRESTOR [Suspect]
     Indication: HYPERCHOLESTEROLAEMIA
     Route: 048
     Dates: start: 20120903
  2. GLUCOPHAGE [Concomitant]
     Indication: DIABETES MELLITUS
     Dates: start: 201110

REACTIONS (4)
  - Diabetes mellitus [Unknown]
  - Blood cholesterol increased [Recovered/Resolved]
  - Blood triglycerides increased [Recovered/Resolved]
  - Drug ineffective [Unknown]
